FAERS Safety Report 25012079 (Version 3)
Quarter: 2025Q1

REPORT INFORMATION
  Report Type: Report from Study
  Country: US (occurrence: US)
  Receive Date: 20250226
  Receipt Date: 20250331
  Transmission Date: 20250408
  Serious: Yes (Hospitalization, Other)
  Sender: GILEAD
  Company Number: US-GILEAD-2025-0705259

PATIENT
  Sex: Female

DRUGS (4)
  1. AMBRISENTAN [Suspect]
     Active Substance: AMBRISENTAN
     Indication: Pulmonary hypertension
     Dosage: 10 MG, QD
     Route: 065
     Dates: start: 20220408
  2. ORENITRAM [Concomitant]
     Active Substance: TREPROSTINIL
  3. ADCIRCA [Concomitant]
     Active Substance: TADALAFIL
  4. DILTIAZEM [Concomitant]
     Active Substance: DILTIAZEM

REACTIONS (3)
  - Pneumonia [Unknown]
  - Syncope [Unknown]
  - Illness [Unknown]
